FAERS Safety Report 4407451-X (Version None)
Quarter: 2004Q3

REPORT INFORMATION
  Report Type: 
  Country: None (occurrence: None)
  Receive Date: 20040721
  Receipt Date: 20040702
  Transmission Date: 20050211
  Serious: Yes (Other)
  Sender: FDA-Public Use
  Company Number: JP_040603590

PATIENT
  Age: 2 Week
  Sex: Male
  Weight: 1 kg

DRUGS (11)
  1. VAMCOMYCIN-IV (VANCOMYCIN) (VANCOMYCIN HYDROCHLORID [Suspect]
     Indication: INFECTION
  2. SURFACTANT [Concomitant]
  3. CEFTAZIDIME [Concomitant]
  4. AMPICILLIN [Concomitant]
  5. GALENIC/PANIPENEM/BETAMIPRON/ [Concomitant]
  6. AMIKACIN [Concomitant]
  7. CEFOZOPRAN [Concomitant]
  8. AZTREONAM [Concomitant]
  9. IMMUNE GLOBULIN INTRAVENOUS (HUMAN) [Concomitant]
  10. INDACIN (INDOMETACIN) [Concomitant]
  11. MICONAZOLE [Concomitant]

REACTIONS (14)
  - C-REACTIVE PROTEIN INCREASED [None]
  - CEREBRAL VENTRICLE DILATATION [None]
  - DISSEMINATED INTRAVASCULAR COAGULATION [None]
  - HERPES SIMPLEX [None]
  - IRRITABILITY [None]
  - LIP EROSION [None]
  - LUNG HERNIA [None]
  - MUCOSAL EROSION [None]
  - MUSCLE SPASMS [None]
  - NEONATAL DISORDER [None]
  - PANCYTOPENIA [None]
  - RENAL FAILURE [None]
  - SCAR [None]
  - SHOCK [None]
